FAERS Safety Report 18144433 (Version 1)
Quarter: 2020Q3

REPORT INFORMATION
  Report Type: Spontaneous
  Country: US (occurrence: US)
  Receive Date: 20200812
  Receipt Date: 20200812
  Transmission Date: 20201103
  Serious: No
  Sender: FDA-Public Use
  Company Number: None

PATIENT
  Age: 77 Year
  Sex: Female
  Weight: 76.95 kg

DRUGS (19)
  1. TAMSULOSIN [Concomitant]
     Active Substance: TAMSULOSIN
  2. CALCIUM [Concomitant]
     Active Substance: CALCIUM
  3. CENTRUM SILVER [Concomitant]
     Active Substance: MINERALS\VITAMINS
  4. TURMERIC [Concomitant]
     Active Substance: HERBALS\TURMERIC
  5. COLLACE [Concomitant]
  6. VITAMIN B12 [Concomitant]
     Active Substance: CYANOCOBALAMIN
  7. C [Concomitant]
  8. OSTEOBIFLEX [Concomitant]
  9. VITAMIN D3 [Concomitant]
     Active Substance: CHOLECALCIFEROL
  10. QUETIAPINE FUMARATE. [Suspect]
     Active Substance: QUETIAPINE FUMARATE
     Indication: DEPRESSION
     Dosage: ?          QUANTITY:1 TABLET(S);OTHER FREQUENCY:5 TIMES A DAY;?
     Route: 048
  11. BUPROPION. [Concomitant]
     Active Substance: BUPROPION
  12. LISINOPRIL. [Concomitant]
     Active Substance: LISINOPRIL
  13. BIOTENE NOS [Concomitant]
     Active Substance: CETYLPYRIDINIUM CHLORIDE OR SODIUM FLUORIDE OR SODIUM MONOFLUOROPHOSPHATE OR GLUCOSE OXIDASE\LACTOFERRIN\LACTOPEROXIDASE BOVINE\LYSOZYME
  14. FENOFIBRATE. [Concomitant]
     Active Substance: FENOFIBRATE
  15. SIMVASTATIN. [Concomitant]
     Active Substance: SIMVASTATIN
  16. SENICOT [Concomitant]
  17. WARFARIN [Concomitant]
     Active Substance: WARFARIN
  18. COREA XT [Concomitant]
  19. VITAMIN D [Concomitant]
     Active Substance: VITAMIN D NOS

REACTIONS (11)
  - Nausea [None]
  - Tongue ulceration [None]
  - Depression [None]
  - Seizure [None]
  - Diarrhoea [None]
  - Dry mouth [None]
  - Glossodynia [None]
  - Swollen tongue [None]
  - Oral discomfort [None]
  - Lip dry [None]
  - Gastrointestinal disorder [None]
